FAERS Safety Report 5287928-8 (Version None)
Quarter: 2007Q1

REPORT INFORMATION
  Report Type: 
  Country: None (occurrence: None)
  Receive Date: 20070330
  Receipt Date: 20070326
  Transmission Date: 20070707
  Serious: Yes (Other)
  Sender: FDA-Public Use
  Company Number: S07-USA-01322-01

PATIENT
  Age: 34 Year
  Sex: Female

DRUGS (2)
  1. CELEXA [Suspect]
     Indication: DEPRESSION
     Dosage: 20 MG QD PO
     Route: 048
     Dates: start: 20020101, end: 20070326
  2. ESTROGENS SOL/INJ [Concomitant]

REACTIONS (3)
  - FATIGUE [None]
  - OVARIAN CANCER [None]
  - SOMNOLENCE [None]
